FAERS Safety Report 7678264-0 (Version None)
Quarter: 2011Q3

REPORT INFORMATION
  Report Type: 
  Country: None (occurrence: None)
  Receive Date: 20110808
  Receipt Date: 20110624
  Transmission Date: 20111222
  Serious: Yes (Other)
  Sender: FDA-Public Use
  Company Number: 2128643-2011-00031

PATIENT
  Age: 90 Year
  Sex: Female

DRUGS (1)
  1. TRIADINE PVP-I PREP SOLUTION 4OZ BOTTLE - 10% W/V [Suspect]
     Indication: CATARACT OPERATION
     Dosage: DILUTE 1/2 WITH SALINE
     Dates: start: 20110526

REACTIONS (3)
  - POST PROCEDURAL COMPLICATION [None]
  - PRODUCT QUALITY ISSUE [None]
  - EYE BURNS [None]
